FAERS Safety Report 13532337 (Version 1)
Quarter: 2017Q2

REPORT INFORMATION
  Report Type: Spontaneous
  Country: US (occurrence: US)
  Receive Date: 20170510
  Receipt Date: 20170510
  Transmission Date: 20170830
  Serious: No
  Sender: FDA-Public Use
  Company Number: US-EISAI MEDICAL RESEARCH-EC-2017-027189

PATIENT
  Age: 40 Year
  Sex: Female

DRUGS (2)
  1. BELVIQ XR [Suspect]
     Active Substance: LORCASERIN HYDROCHLORIDE
     Indication: WEIGHT DECREASED
     Dosage: UNKNOWN
     Route: 048
  2. BELVIQ XR [Suspect]
     Active Substance: LORCASERIN HYDROCHLORIDE
     Dosage: 20 MG ONCE DAILY
     Route: 048
     Dates: start: 20170419, end: 20170427

REACTIONS (3)
  - Fatigue [Recovered/Resolved]
  - Pain [Recovered/Resolved]
  - Urinary tract infection [Not Recovered/Not Resolved]

NARRATIVE: CASE EVENT DATE: 201704
